FAERS Safety Report 20326837 (Version 2)
Quarter: 2022Q1

REPORT INFORMATION
  Report Type: Spontaneous
  Country: US (occurrence: US)
  Receive Date: 20220112
  Receipt Date: 20220121
  Transmission Date: 20220423
  Serious: Yes (Hospitalization, Other)
  Sender: FDA-Public Use
  Company Number: US-ELI_LILLY_AND_COMPANY-US202201002775

PATIENT
  Sex: Female

DRUGS (3)
  1. HUMALOG [Suspect]
     Active Substance: INSULIN LISPRO
     Indication: Product used for unknown indication
     Dosage: 15 U, UNKNOWN
     Route: 065
  2. HUMALOG [Suspect]
     Active Substance: INSULIN LISPRO
     Dosage: UNK UNK, UNKNOWN
     Route: 065
  3. COVID-19 VACCINE [Concomitant]

REACTIONS (10)
  - Seizure [Recovered/Resolved]
  - COVID-19 [Not Recovered/Not Resolved]
  - Loss of consciousness [Unknown]
  - Foot fracture [Unknown]
  - Blood glucose increased [Unknown]
  - Fall [Unknown]
  - Injury [Unknown]
  - Contusion [Unknown]
  - Scratch [Unknown]
  - Fatigue [Unknown]
